FAERS Safety Report 23681209 (Version 2)
Quarter: 2024Q2

REPORT INFORMATION
  Report Type: Spontaneous
  Country: JP (occurrence: JP)
  Receive Date: 20240328
  Receipt Date: 20240411
  Transmission Date: 20240715
  Serious: Yes (Disabling)
  Sender: FDA-Public Use
  Company Number: JP-DSJP-DSJ-2024-111062

PATIENT

DRUGS (17)
  1. DENOSUMAB [Suspect]
     Active Substance: DENOSUMAB
     Indication: Metastases to bone
     Dosage: 120 MILLIGRAM, Q4WK, 19 TIMES IN TOTAL
     Route: 058
     Dates: start: 20211213, end: 20230529
  2. DARBEPOETIN ALFA [Concomitant]
     Active Substance: DARBEPOETIN ALFA
     Dosage: 40 UG, ONCE EVERY 1 WK, MONDAY
     Route: 065
  3. NIFEDIPINE [Concomitant]
     Active Substance: NIFEDIPINE
     Dosage: 40 MILLIGRAM, QD, AFTER BREAKFAST
     Route: 048
  4. LINAGLIPTIN [Concomitant]
     Active Substance: LINAGLIPTIN
     Dosage: 5 MILLIGRAM, QD, AFTER BREAKFAST
     Route: 048
  5. LANSOPRAZOLE [Concomitant]
     Active Substance: LANSOPRAZOLE
     Dosage: 15 MILLIGRAM, QD, AFTER BREAKFAST
     Route: 048
  6. OLMESARTAN MEDOXOMIL [Concomitant]
     Active Substance: OLMESARTAN MEDOXOMIL
     Dosage: 20 MILLIGRAM, BID, AFTER BREAKFAST AND DINNER
     Route: 048
  7. FEBUXOSTAT [Concomitant]
     Active Substance: FEBUXOSTAT
     Dosage: 10 MILLIGRAM, QD, AFTER BREAKFAST
     Route: 048
  8. DOXAZOSIN MESYLATE [Concomitant]
     Active Substance: DOXAZOSIN MESYLATE
     Dosage: 1 MILLIGRAM, QD, BEFORE SLEEP
     Route: 048
  9. CALCIUM CARBONATE\CHOLECALCIFEROL\MAGNESIUM CARBONATE [Concomitant]
     Active Substance: CALCIUM CARBONATE\CHOLECALCIFEROL\MAGNESIUM CARBONATE
     Dosage: 2 DF, QD, AFTER BREAKFAST
     Route: 048
  10. XTANDI [Concomitant]
     Active Substance: ENZALUTAMIDE
     Indication: Prostate cancer
     Dosage: 160MG/DAY
     Route: 048
     Dates: start: 20211208, end: 20230425
  11. XTANDI [Concomitant]
     Active Substance: ENZALUTAMIDE
     Dosage: 80 MG, QD, BEFORE SLEEP
     Route: 048
     Dates: start: 2023
  12. BROTIZOLAM [Concomitant]
     Active Substance: BROTIZOLAM
     Dosage: 0.25 MILLIGRAM, QD, BEFORE SLEEP
     Route: 048
  13. DEQUALINIUM CHLORIDE [Concomitant]
     Active Substance: DEQUALINIUM CHLORIDE
     Dosage: UNK UNK, QID
     Route: 065
  14. KETOPROFEN [Concomitant]
     Active Substance: KETOPROFEN
     Dosage: 80MG/DAY
     Route: 050
  15. OXAROL [Concomitant]
     Active Substance: MAXACALCITOL
     Dosage: 5 UG, 3 TIMES PER 1WK, MONDAY, WEDNESDAY, FRIDAY
     Route: 065
  16. DEGARELIX [Concomitant]
     Active Substance: DEGARELIX
     Dosage: 80 MILLIGRAM, Q4WK
     Route: 065
     Dates: start: 20230529
  17. Fesin [Concomitant]
     Dosage: 40 MILLIGRAM, QWK
     Route: 065
     Dates: end: 20230612

REACTIONS (4)
  - Loose tooth [Unknown]
  - Hypocalcaemia [Unknown]
  - Osteonecrosis of jaw [Not Recovered/Not Resolved]
  - Decreased appetite [Recovering/Resolving]
